FAERS Safety Report 21656574 (Version 4)
Quarter: 2023Q1

REPORT INFORMATION
  Report Type: Spontaneous
  Country: CO (occurrence: CO)
  Receive Date: 20221129
  Receipt Date: 20230214
  Transmission Date: 20230417
  Serious: Yes (Hospitalization, Other)
  Sender: FDA-Public Use
  Company Number: CO-Clinigen Group PLC/ Clinigen Healthcare Ltd-CO-CLGN-22-00526

PATIENT
  Age: 13 Year
  Sex: Male

DRUGS (1)
  1. INTERFERON GAMMA [Suspect]
     Active Substance: INTERFERON GAMMA
     Indication: Primary immunodeficiency syndrome
     Route: 058
     Dates: start: 2017

REACTIONS (4)
  - Postoperative wound infection [Recovered/Resolved]
  - Appendicectomy [Recovered/Resolved]
  - Pyrexia [Recovered/Resolved]
  - Off label use [Unknown]

NARRATIVE: CASE EVENT DATE: 20221106
